FAERS Safety Report 25418277 (Version 2)
Quarter: 2025Q2

REPORT INFORMATION
  Report Type: Report from Study
  Country: US (occurrence: US)
  Receive Date: 20250610
  Receipt Date: 20250616
  Transmission Date: 20250717
  Serious: Yes (Other)
  Sender: SANDOZ
  Company Number: US-002147023-NVSC2021US037592

PATIENT
  Sex: Female

DRUGS (3)
  1. GLATOPA [Suspect]
     Active Substance: GLATIRAMER ACETATE
     Route: 058
  2. GLATOPA [Suspect]
     Active Substance: GLATIRAMER ACETATE
     Route: 065
  3. GLATOPA [Suspect]
     Active Substance: GLATIRAMER ACETATE
     Indication: Multiple sclerosis
     Route: 058
     Dates: start: 2021

REACTIONS (12)
  - Cataract [Unknown]
  - Sinusitis [Unknown]
  - Injury associated with device [Unknown]
  - Feeling abnormal [Unknown]
  - Urticaria [Unknown]
  - Injection site pruritus [Recovering/Resolving]
  - Injection site erythema [Recovering/Resolving]
  - Incorrect dose administered [Unknown]
  - Device defective [Unknown]
  - Needle issue [Unknown]
  - Product storage error [Unknown]
  - Device issue [Unknown]
